FAERS Safety Report 12191096 (Version 1)
Quarter: 2016Q1

REPORT INFORMATION
  Report Type: Spontaneous
  Country: US (occurrence: None)
  Receive Date: 20160317
  Receipt Date: 20160317
  Transmission Date: 20160526
  Serious: Yes (Hospitalization)
  Sender: FDA-Public Use
  Company Number: None

PATIENT
  Age: 57 Year
  Sex: Female

DRUGS (1)
  1. RANIBIZUMAUB 0.3MG [Suspect]
     Active Substance: RANIBIZUMAB
     Indication: DIABETIC RETINAL OEDEMA
     Dosage: 0.05MG MONTHLY INTRAVITREAL
     Dates: start: 20131230

REACTIONS (2)
  - Myocardial infarction [None]
  - Cerebrovascular accident [None]

NARRATIVE: CASE EVENT DATE: 20160310
